FAERS Safety Report 12761789 (Version 2)
Quarter: 2016Q3

REPORT INFORMATION
  Report Type: Spontaneous
  Country: US (occurrence: US)
  Receive Date: 20160920
  Receipt Date: 20160927
  Transmission Date: 20161109
  Serious: No
  Sender: FDA-Public Use
  Company Number: US-PFIZER INC-2016436077

PATIENT
  Sex: Male

DRUGS (2)
  1. VIAGRA [Suspect]
     Active Substance: SILDENAFIL CITRATE
     Indication: ERECTILE DYSFUNCTION
     Dosage: 1 DF, UNK
  2. VIAGRA [Suspect]
     Active Substance: SILDENAFIL CITRATE
     Dosage: 2 DF, AFTER 24 HOURS

REACTIONS (2)
  - Drug ineffective [Unknown]
  - Extra dose administered [Unknown]
